FAERS Safety Report 6311451-2 (Version None)
Quarter: 2009Q3

REPORT INFORMATION
  Report Type: 
  Country: None (occurrence: None)
  Receive Date: 20090804
  Receipt Date: 20090727
  Transmission Date: 20100115
  Serious: Yes (Hospitalization, Other)
  Sender: FDA-Public Use
  Company Number: THYM-1001124

PATIENT
  Age: 62 Year
  Sex: Female

DRUGS (8)
  1. THYMOGLOBULIN [Suspect]
     Indication: IMMUNOSUPPRESSION
     Dosage: 1.5 MG/KG, QDX3, INTRAVENOUS
     Route: 042
     Dates: start: 20070913, end: 20070917
  2. ASPEGIC (ACETYLSALICYLATE LYSINE) [Concomitant]
  3. UVIMAG B6 (MAGNESIUM) [Concomitant]
  4. BUMETANIDE [Concomitant]
  5. NEXIUM [Concomitant]
  6. METHYLPREDNISOLONE [Concomitant]
  7. TACROLIMUS [Concomitant]
  8. MYCOPHENOLATE MOFETIL [Concomitant]

REACTIONS (5)
  - DISEASE RECURRENCE [None]
  - GENERALISED OEDEMA [None]
  - HEPATIC CIRRHOSIS [None]
  - HEPATITIS C [None]
  - PLEURISY [None]
